FAERS Safety Report 6763693-X (Version None)
Quarter: 2010Q2

REPORT INFORMATION
  Report Type: 
  Country: None (occurrence: None)
  Receive Date: 20100610
  Receipt Date: 20100601
  Transmission Date: 20101027
  Serious: Yes (Hospitalization, Other)
  Sender: FDA-Public Use
  Company Number: US-ASTRAZENECA-2010SE25284

PATIENT
  Age: 57 Year
  Sex: Male
  Weight: 108 kg

DRUGS (19)
  1. NEXIUM [Suspect]
     Indication: GASTROOESOPHAGEAL REFLUX DISEASE
     Route: 048
  2. ZOLOFT [Suspect]
     Indication: DEPRESSION
     Route: 048
     Dates: start: 20090101, end: 20100301
  3. VIAGRA [Suspect]
     Indication: ERECTILE DYSFUNCTION
     Route: 065
  4. NITROGLYCERIN [Suspect]
     Indication: CHEST PAIN
     Route: 060
  5. AMOXICILLIN [Suspect]
     Route: 048
  6. PRINIVIL [Suspect]
     Indication: HYPERTENSION
     Route: 065
  7. CORDARONE [Suspect]
     Route: 065
  8. LANOXIN [Suspect]
     Route: 065
  9. NASONEX [Suspect]
     Dosage: 2 SPRAYS IN EACH NOSTRIL EVERY DAY
     Route: 045
  10. LOPRESSOR [Suspect]
     Indication: ATRIAL FIBRILLATION
     Route: 065
  11. PRAVACHOL [Suspect]
     Route: 065
  12. WARFARIN [Suspect]
     Route: 048
  13. MUCINEX [Suspect]
     Route: 048
  14. LORAZEPAM [Suspect]
     Dosage: 0.5 MG AS NEEDED AT BED TIME
     Route: 065
  15. COMPAZINE [Suspect]
     Route: 065
  16. FLONASE [Suspect]
     Dosage: 50 MCG/ACT SUSPENSION 2 SPRAYS IN EACH NOSTRIL DAILY
     Route: 045
  17. PROAIR HFA [Suspect]
     Indication: DYSPNOEA
     Dosage: 108(90 BASE) MCG/ACT AERS 2 PUFFS EVERY 6 HOURS AS NEEDED
     Route: 065
  18. PRISTIQ [Suspect]
     Route: 048
  19. ACETYLSALICYLIC ACID [Concomitant]

REACTIONS (9)
  - ANXIETY [None]
  - ATRIAL FIBRILLATION [None]
  - BARRETT'S OESOPHAGUS [None]
  - BLOOD CHOLESTEROL INCREASED [None]
  - CALCULUS URETERIC [None]
  - CHEST PAIN [None]
  - GALLBLADDER OPERATION [None]
  - PANCREATITIS [None]
  - SINUS BRADYCARDIA [None]
